FAERS Safety Report 8447522-4 (Version None)
Quarter: 2012Q2

REPORT INFORMATION
  Report Type: 
  Country: None (occurrence: None)
  Receive Date: 20120619
  Receipt Date: 20120607
  Transmission Date: 20120825
  Serious: Yes (Hospitalization)
  Sender: FDA-Public Use
  Company Number: US-ELI_LILLY_AND_COMPANY-US201206003311

PATIENT
  Sex: Female

DRUGS (2)
  1. FORTEO [Suspect]
     Dosage: 20 UG, QD
     Dates: start: 20111001
  2. FORTEO [Suspect]
     Indication: OSTEOPOROSIS
     Dosage: 20 UG, QD
     Dates: start: 20100101, end: 20110401

REACTIONS (8)
  - BLISTER [None]
  - INCORRECT DRUG ADMINISTRATION DURATION [None]
  - IMPAIRED HEALING [None]
  - INFECTION [None]
  - TRAUMATIC TOOTH DISPLACEMENT [None]
  - SKIN ULCER [None]
  - GAIT DISTURBANCE [None]
  - ROAD TRAFFIC ACCIDENT [None]
